FAERS Safety Report 6169463-8 (Version None)
Quarter: 2009Q2

REPORT INFORMATION
  Report Type: 
  Country: None (occurrence: None)
  Receive Date: 20090428
  Receipt Date: 20090427
  Transmission Date: 20091009
  Serious: Yes (Hospitalization)
  Sender: FDA-Public Use
  Company Number: PHHO2006HU15791

PATIENT
  Sex: Female
  Weight: 55 kg

DRUGS (2)
  1. CGS 20267 T30748+ [Suspect]
     Indication: BREAST CANCER
     Dosage: 2.5 MG, QD
     Route: 048
     Dates: start: 20011031
  2. TAMOXIFEN CITRATE [Suspect]
     Dosage: 20 MG, QD
     Dates: end: 20060508

REACTIONS (6)
  - CENTRAL NERVOUS SYSTEM NEOPLASM [None]
  - CONFUSIONAL STATE [None]
  - MEMORY IMPAIRMENT [None]
  - NERVOUS SYSTEM DISORDER [None]
  - VASCULAR ENCEPHALOPATHY [None]
  - VISUAL ACUITY REDUCED [None]
